FAERS Safety Report 24686354 (Version 1)
Quarter: 2024Q4

REPORT INFORMATION
  Report Type: Spontaneous
  Country: CA (occurrence: CA)
  Receive Date: 20241202
  Receipt Date: 20241202
  Transmission Date: 20250115
  Serious: Yes (Other)
  Sender: PFIZER
  Company Number: CA-PFIZER INC-202400312225

PATIENT
  Sex: Female

DRUGS (5)
  1. EXEMESTANE [Suspect]
     Active Substance: EXEMESTANE
     Indication: Ovarian cancer
  2. PACLITAXEL [Suspect]
     Active Substance: PACLITAXEL
     Indication: Ovarian cancer
  3. LETROZOLE [Suspect]
     Active Substance: LETROZOLE
     Indication: Ovarian cancer
  4. APIXABAN [Concomitant]
     Active Substance: APIXABAN
  5. ROSUVASTATIN [Concomitant]
     Active Substance: ROSUVASTATIN

REACTIONS (3)
  - Product use in unapproved indication [Unknown]
  - Hyperlipidaemia [Unknown]
  - Pulmonary embolism [Unknown]
